FAERS Safety Report 8600717 (Version 2)
Quarter: 2012Q4

REPORT INFORMATION
  Report Type: Report from Study
  Country: CA (occurrence: CA)
  Receive Date: 20120606
  Receipt Date: 20121126
  Transmission Date: 20130627
  Serious: Yes (Hospitalization)
  Sender: FDA-Public Use
  Company Number: CA-BRISTOL-MYERS SQUIBB COMPANY-16639619

PATIENT
  Age: 57 Year
  Sex: Female
  Weight: 58 kg

DRUGS (13)
  1. ORENCIA [Suspect]
     Indication: RHEUMATOID ARTHRITIS
     Dosage: inf:14. Last dose: 28May12,17Oct12
     Route: 042
     Dates: start: 20111115, end: 20121017
  2. GOLD SALTS [Concomitant]
     Dosage: injections
     Route: 042
  3. PREDNISONE [Concomitant]
     Dosage: 1 DF: 5mg + 4mg
  4. CELEBREX [Concomitant]
  5. PANTOLOC [Concomitant]
  6. VITAMIN B12 [Concomitant]
  7. DIOVAN [Concomitant]
  8. EFFEXOR [Concomitant]
  9. AMLODIPINE [Concomitant]
  10. CRESTOR [Concomitant]
  11. FOSAMAX [Concomitant]
  12. SYNTHROID [Concomitant]
  13. OXYCODONE [Concomitant]

REACTIONS (2)
  - Osteoarthritis [Unknown]
  - Drug ineffective [Unknown]
